FAERS Safety Report 10077815 (Version 2)
Quarter: 2014Q2

REPORT INFORMATION
  Report Type: Report from Study
  Country: CA (occurrence: CA)
  Receive Date: 20140414
  Receipt Date: 20140414
  Transmission Date: 20141212
  Serious: Yes (Hospitalization, Other)
  Sender: FDA-Public Use
  Company Number: PHHY2014CA031622

PATIENT
  Age: 9 Year
  Sex: Female
  Weight: 22.4 kg

DRUGS (21)
  1. TOBRAMYCIN INHALATION POWDER [Suspect]
     Indication: CYSTIC FIBROSIS
     Dosage: 112 MG, BID
     Route: 055
     Dates: start: 20130604, end: 201402
  2. TOBRAMYCIN INHALATION POWDER [Suspect]
     Indication: PSEUDOMONAS INFECTION
  3. COTAZYM ECS                        /00620701/ [Concomitant]
     Indication: PANCREATIC INSUFFICIENCY
     Dosage: UNK (3 DF/MEAL), (1 DF/MEAL), (4 DF/MEAL)
     Route: 048
     Dates: end: 20140219
  4. VITAMIN E [Concomitant]
     Indication: SUPPLEMENTATION THERAPY
     Dosage: 100 IU, POSTDIET DAILY
     Route: 048
     Dates: start: 20111115
  5. VENTOLIN                           /00942701/ [Concomitant]
     Indication: ASTHMA
     Dosage: 100 UG, QID
     Dates: start: 20140219
  6. NACL [Concomitant]
     Indication: CYSTIC FIBROSIS LUNG
     Dosage: 4 ML, DAILY
     Dates: start: 20091119
  7. ALVESCO [Concomitant]
     Indication: ASTHMA
     Dosage: 200 UG, UNK
     Dates: start: 200907
  8. ALVESCO [Concomitant]
     Dosage: 200 UG, BID
     Dates: end: 20140219
  9. PERIACTIN [Concomitant]
     Indication: INCREASED APPETITE
     Dosage: 4 MG, DAILY AM
     Dates: start: 20131012
  10. PERIACTIN [Concomitant]
     Dosage: 2 MG, DAILY
     Dates: start: 20131012
  11. PERIACTIN [Concomitant]
     Dosage: 4 MG, BID
     Route: 048
     Dates: end: 20140219
  12. PERIACTIN [Concomitant]
     Dosage: 2 MG, BID
     Route: 048
     Dates: end: 20140219
  13. SINUS RINSE [Concomitant]
     Dosage: 8 UNK (ONCES), BID
     Dates: start: 20130917
  14. SINUS RINSE [Concomitant]
     Dosage: UNK, BID
     Dates: end: 20140219
  15. SINUS RINSE [Concomitant]
     Dosage: 8 UNK (ONCES), BID
  16. FLUTICASONE [Concomitant]
     Indication: NASAL POLYPS
     Dosage: 1 DF, BID
     Dates: start: 20130917
  17. FLUTICASONE [Concomitant]
     Dosage: UNK UKN, BID
     Dates: end: 20140219
  18. FLUTICASONE [Concomitant]
     Dosage: 1 DF, BID
  19. LAX-A-DAY [Concomitant]
     Indication: CONSTIPATION
     Dosage: 17 G, PRN (DAILY)
     Route: 048
     Dates: start: 20131013
  20. MULTIVITAMIN                       /00097801/ [Concomitant]
     Indication: SUPPLEMENTATION THERAPY
     Dosage: UNK UKN, DAILY
     Route: 048
     Dates: start: 20130604
  21. PREVACID [Concomitant]
     Indication: GASTROOESOPHAGEAL REFLUX DISEASE
     Dosage: 30 MG, DAILY
     Route: 048
     Dates: start: 20090318

REACTIONS (12)
  - Cystic fibrosis [Recovering/Resolving]
  - Oxygen saturation abnormal [Unknown]
  - Bronchiectasis [Unknown]
  - Condition aggravated [Recovering/Resolving]
  - Culture throat positive [Unknown]
  - Stenotrophomonas test positive [Unknown]
  - Staphylococcus test positive [Unknown]
  - Pseudomonas test positive [Unknown]
  - Diabetes mellitus [Unknown]
  - General physical health deterioration [Unknown]
  - Hyperglycaemia [Unknown]
  - Chest pain [Unknown]
